FAERS Safety Report 5800492-7 (Version None)
Quarter: 2008Q3

REPORT INFORMATION
  Report Type: 
  Country: None (occurrence: None)
  Receive Date: 20080703
  Receipt Date: 20080627
  Transmission Date: 20090109
  Serious: Yes (Other)
  Sender: FDA-Public Use
  Company Number: A0736077A

PATIENT
  Age: 18 Year
  Sex: Female

DRUGS (2)
  1. COMBIVIR [Suspect]
     Indication: ANTIRETROVIRAL THERAPY
     Dosage: 2TAB PER DAY
     Route: 048
     Dates: start: 20080519, end: 20080618
  2. VIRACEPT [Concomitant]
     Indication: ANTIRETROVIRAL THERAPY
     Dosage: 2500MG PER DAY
     Route: 048
     Dates: start: 20080519, end: 20080618

REACTIONS (4)
  - CHORIOAMNIONITIS [None]
  - DRUG EXPOSURE DURING PREGNANCY [None]
  - STILLBIRTH [None]
  - TOXOPLASMOSIS [None]
